FAERS Safety Report 9252343 (Version 1)
Quarter: 2013Q1

REPORT INFORMATION
  Report Type: Spontaneous
  Country: US (occurrence: None)
  Receive Date: 20130305
  Receipt Date: 20130305
  Transmission Date: 20140127
  Serious: Yes (Other)
  Sender: FDA-Public Use
  Company Number: 163-21880-12083030

PATIENT
  Age: 83 Year
  Sex: Female

DRUGS (15)
  1. REVLIMID [Suspect]
     Indication: PLASMA CELL MYELOMA
     Dosage: 21 IN 21 D
     Route: 048
     Dates: start: 20111019
  2. ACETAMINOPHEN (PARACETAMOL) [Suspect]
  3. ATENOLOL (ATENOLOL) (TABLETS) [Concomitant]
  4. ATIVAN (LORAZEPAM) (TABLETS) [Concomitant]
  5. BACLOFEN (BACLOFEN) (TABLETS) [Concomitant]
  6. CALTRATE 600+D (UNKNOWN) [Concomitant]
  7. COUMADIN (WARFARIN SODIUM) (TABLETS) [Concomitant]
  8. HYDROCHLOROTHIAZIDE (HYDROCHLOROTHIAZIDE) [Concomitant]
  9. LIPITOR (ATORVASTATIN) [Concomitant]
  10. MAGNESIUM OXIDE (MAGNESIUM OXIDE) [Concomitant]
  11. MOUTHWASHES (UNKNOWN) [Concomitant]
  12. OMEPRAZOLE (OMEPRAZOLE) [Concomitant]
  13. PHENERGAN (SUPPOSITORY) [Concomitant]
  14. POTASSIUM CHLORIDE (POTASSIUM CHLORIDE) [Concomitant]
  15. ZOFRAN (ONDANSETRON HYDROCHLORIDE) (TABLETS) [Concomitant]

REACTIONS (2)
  - Pneumonia [None]
  - Haemoglobin decreased [None]
